FAERS Safety Report 5629774-9 (Version None)
Quarter: 2008Q1

REPORT INFORMATION
  Report Type: 
  Country: None (occurrence: None)
  Receive Date: 20080218
  Receipt Date: 20080201
  Transmission Date: 20080703
  Serious: Yes (Hospitalization, Other)
  Sender: FDA-Public Use
  Company Number: US-BAYER-200810486BCC

PATIENT
  Age: 60 Year
  Sex: Female
  Weight: 69 kg

DRUGS (4)
  1. ASPIRIN [Suspect]
     Indication: ISCHAEMIC HEART DISEASE PROPHYLAXIS
     Dosage: TOTAL DAILY DOSE: 81 MG  UNIT DOSE: 81 MG
     Route: 048
     Dates: start: 20071201
  2. DIOVAN [Concomitant]
     Route: 048
  3. BENICAR [Concomitant]
  4. PROTONIX [Concomitant]

REACTIONS (5)
  - FAECES DISCOLOURED [None]
  - HAEMORRHAGE [None]
  - PALPITATIONS [None]
  - ULCER [None]
  - VOMITING [None]
